FAERS Safety Report 9941805 (Version 2)
Quarter: 2014Q1

REPORT INFORMATION
  Report Type: Report from Study
  Country: US (occurrence: US)
  Receive Date: 20140303
  Receipt Date: 20140303
  Transmission Date: 20141002
  Serious: No
  Sender: FDA-Public Use
  Company Number: US-ABBVIE-12P-163-0989518-00

PATIENT
  Age: 50 Year
  Sex: Female

DRUGS (14)
  1. HUMIRA [Suspect]
     Indication: RHEUMATOID ARTHRITIS
     Dates: start: 20120928
  2. METHOTREXATE [Concomitant]
     Indication: RHEUMATOID ARTHRITIS
     Dosage: 2.5MG WEEKLY
  3. DICLOFENAC [Concomitant]
     Indication: INFLAMMATION
     Dosage: 100MG DAILY
  4. OMEPRAZOLE [Concomitant]
     Indication: GASTROOESOPHAGEAL REFLUX DISEASE
     Dosage: 20MG DAILY
  5. TRAZODONE [Concomitant]
     Indication: INSOMNIA
     Dosage: 50MG DAILY AT BEDTIME
  6. PREMARIN [Concomitant]
     Indication: HORMONE REPLACEMENT THERAPY
     Dosage: .625MG DAILY
  7. EFFEXOR [Concomitant]
     Indication: PAIN
  8. EFFEXOR [Concomitant]
     Indication: ANXIETY
  9. NOVASCABIN [Concomitant]
     Indication: MIGRAINE PROPHYLAXIS
     Dosage: 10MG DAILY
  10. FIORINAL [Concomitant]
     Indication: PAIN
  11. DUEXIS [Concomitant]
     Indication: PAIN
     Dosage: AT NIGHT
  12. LIOTHYRONINE [Concomitant]
     Indication: HYPOTHYROIDISM
     Dosage: 5MG DAILY
  13. LEVOXYL [Concomitant]
     Indication: HYPOTHYROIDISM
     Dosage: .25MG DAILY
  14. FOLIC ACID [Concomitant]
     Indication: VITAMIN SUPPLEMENTATION

REACTIONS (17)
  - Dizziness [Recovered/Resolved]
  - Breast mass [Recovered/Resolved]
  - Injection site pain [Recovered/Resolved]
  - Nausea [Recovered/Resolved]
  - Injection site pain [Recovered/Resolved]
  - Rash macular [Recovered/Resolved]
  - Injection site pain [Recovered/Resolved]
  - Fibroadenoma of breast [Recovered/Resolved]
  - Injection site pain [Recovered/Resolved]
  - Injection site pain [Recovered/Resolved]
  - Injection site oedema [Recovered/Resolved]
  - Nausea [Recovered/Resolved]
  - Motion sickness [Recovered/Resolved]
  - Injection site erythema [Recovered/Resolved]
  - Injection site hypertrophy [Recovered/Resolved]
  - Injection site pruritus [Recovered/Resolved]
  - Injection site warmth [Recovered/Resolved]
